FAERS Safety Report 18500526 (Version 1)
Quarter: 2020Q4

REPORT INFORMATION
  Report Type: Spontaneous
  Country: US (occurrence: US)
  Receive Date: 20201112
  Receipt Date: 20201112
  Transmission Date: 20210114
  Serious: Yes (Death)
  Sender: FDA-Public Use
  Company Number: None

PATIENT
  Sex: Male
  Weight: 112.5 kg

DRUGS (4)
  1. NINLARO [Suspect]
     Active Substance: IXAZOMIB CITRATE
     Indication: PLASMA CELL MYELOMA
     Dosage: ?          OTHER FREQUENCY:ONCE WEEKLY;?
     Route: 048
     Dates: start: 20150119, end: 20201112
  2. REVLIMID 5MG ORAL [Concomitant]
  3. ATENOLOL 25MG ORAL [Concomitant]
  4. DIGOX 125MCG ORAL [Concomitant]

REACTIONS (1)
  - Death [None]
